FAERS Safety Report 4730515-8 (Version None)
Quarter: 2005Q3

REPORT INFORMATION
  Report Type: 
  Country: None (occurrence: None)
  Receive Date: 20050725
  Receipt Date: 20050304
  Transmission Date: 20060218
  Serious: No
  Sender: FDA-Public Use
  Company Number: USA050290749

PATIENT
  Age: 38 Year
  Sex: Male
  Weight: 80 kg

DRUGS (2)
  1. STRATTERA [Suspect]
     Indication: ATTENTION DEFICIT/HYPERACTIVITY DISORDER
     Dosage: 80 MG DAY
     Dates: start: 20050201
  2. HUMALOG [Concomitant]

REACTIONS (6)
  - DIZZINESS [None]
  - DYSPHONIA [None]
  - ENERGY INCREASED [None]
  - MEDICATION ERROR [None]
  - MUSCULOSKELETAL DISCOMFORT [None]
  - NAUSEA [None]
